FAERS Safety Report 13080989 (Version 5)
Quarter: 2017Q2

REPORT INFORMATION
  Report Type: Report from Study
  Country: US (occurrence: US)
  Receive Date: 20170103
  Receipt Date: 20170512
  Transmission Date: 20170830
  Serious: Yes (Other)
  Sender: FDA-Public Use
  Company Number: US-JNJFOC-20170100551

PATIENT
  Sex: Female

DRUGS (4)
  1. IMBRUVICA [Suspect]
     Active Substance: IBRUTINIB
     Indication: CHRONIC LYMPHOCYTIC LEUKAEMIA
     Route: 048
     Dates: start: 20160122, end: 2016
  2. IMBRUVICA [Suspect]
     Active Substance: IBRUTINIB
     Indication: CHRONIC LYMPHOCYTIC LEUKAEMIA
     Route: 048
     Dates: start: 20150222
  3. IMBRUVICA [Suspect]
     Active Substance: IBRUTINIB
     Indication: CHRONIC LYMPHOCYTIC LEUKAEMIA
     Route: 048
     Dates: start: 20161205
  4. ATENOLOL. [Concomitant]
     Active Substance: ATENOLOL

REACTIONS (6)
  - Bronchitis [Recovering/Resolving]
  - Post procedural haemorrhage [Not Recovered/Not Resolved]
  - Breast cancer [Unknown]
  - Implant site bruising [Unknown]
  - Irritable bowel syndrome [Not Recovered/Not Resolved]
  - Implant site swelling [Unknown]
